FAERS Safety Report 22132122 (Version 2)
Quarter: 2023Q2

REPORT INFORMATION
  Report Type: Spontaneous
  Country: US (occurrence: US)
  Receive Date: 20230323
  Receipt Date: 20230404
  Transmission Date: 20230722
  Serious: Yes (Hospitalization)
  Sender: FDA-Public Use
  Company Number: US-TEVA-2023-US-2867602

PATIENT
  Sex: Female
  Weight: 3.3 kg

DRUGS (16)
  1. PROPRANOLOL [Suspect]
     Active Substance: PROPRANOLOL HYDROCHLORIDE
     Indication: Atrial tachycardia
     Dosage: RECEIVED AT 1 MG/KG/DAY DIVIDED EVERY 6 HOURS ON POST-OPERATIVE DAY 11
     Route: 050
  2. SOTALOL [Suspect]
     Active Substance: SOTALOL
     Indication: Atrial tachycardia
     Dosage: RECEIVED EVERY 8 HOURS ON POST-OPERATIVE DAY 7, 12 MG/M2
     Route: 065
  3. DIGOXIN [Suspect]
     Active Substance: DIGOXIN
     Indication: Atrial tachycardia
     Dosage: RECEIVED PRIOR TO THE NORWOOD PROCEDURE, 16 UG/KG
     Route: 051
  4. DIGOXIN [Suspect]
     Active Substance: DIGOXIN
     Dosage: 6 UG/KG DAILY; 3 UG/KG TWICE DAILY
     Route: 051
  5. AMIODARONE [Suspect]
     Active Substance: AMIODARONE
     Indication: Atrial tachycardia
     Dosage: STARTED RECEIVING ON POST-OPERATIVE DAY 10, 7 UG/KG PER MIN
     Route: 041
  6. AMIODARONE [Suspect]
     Active Substance: AMIODARONE
     Dosage: STARTED RECEIVING REDUCED DOSE ON POST-OPERATIVE DAY 12, 3.5 UG/KG PER MIN
     Route: 041
  7. AMIODARONE [Suspect]
     Active Substance: AMIODARONE
     Dosage: RECEIVED 10 BOLUSES ON POST-OPERATIVE DAY 18, 1 MG/KG
     Route: 041
  8. AMIODARONE [Suspect]
     Active Substance: AMIODARONE
     Dosage: STARTED RECEIVING INCREASED DOSE, 7 UG/KG PER MIN
     Route: 041
  9. ESMOLOL [Suspect]
     Active Substance: ESMOLOL HYDROCHLORIDE
     Indication: Atrial tachycardia
     Route: 041
  10. ESMOLOL [Suspect]
     Active Substance: ESMOLOL HYDROCHLORIDE
     Dosage: RECEIVED AS TRIALS
     Route: 041
  11. ESMOLOL [Suspect]
     Active Substance: ESMOLOL HYDROCHLORIDE
     Dosage: RECEIVED ON POST-OPERATIVE DAY 37, 250 UG/KG PER MIN
     Route: 041
  12. IVABRADINE [Suspect]
     Active Substance: IVABRADINE
     Indication: Atrial tachycardia
     Dosage: RECEIVED AT 0.1 MG/KG/DOSE FOR 24 HOURS, TWICE A DAY
     Route: 050
  13. IVABRADINE [Suspect]
     Active Substance: IVABRADINE
     Dosage: RECEIVED AT 0.1 MG/KG/DOSE THREE TIMES A DAY
     Route: 050
  14. PROCAINAMIDE HYDROCHLORIDE [Concomitant]
     Active Substance: PROCAINAMIDE HYDROCHLORIDE
     Indication: Atrial tachycardia
     Dosage: 15 MG/KG
     Route: 041
  15. PROCAINAMIDE HYDROCHLORIDE [Concomitant]
     Active Substance: PROCAINAMIDE HYDROCHLORIDE
     Dosage: 40 UG/KG PER MIN
     Route: 041
  16. PROCAINAMIDE HYDROCHLORIDE [Concomitant]
     Active Substance: PROCAINAMIDE HYDROCHLORIDE
     Dosage: RECEIVED AS TRIALS
     Route: 041

REACTIONS (6)
  - Heart rate decreased [Unknown]
  - Hypotension [Unknown]
  - Chronotropic incompetence [Unknown]
  - Sinus bradycardia [Unknown]
  - Hypoxia [Unknown]
  - Drug ineffective [Unknown]
